FAERS Safety Report 20656665 (Version 1)
Quarter: 2022Q1

REPORT INFORMATION
  Report Type: Spontaneous
  Country: ES (occurrence: ES)
  Receive Date: 20220331
  Receipt Date: 20220331
  Transmission Date: 20220423
  Serious: Yes (Hospitalization)
  Sender: FDA-Public Use
  Company Number: ES-BEH-2022143418

PATIENT
  Sex: Male

DRUGS (6)
  1. IDELVION [Suspect]
     Active Substance: COAGULATION FACTOR IX RECOMBINANT HUMAN
     Dosage: 35 INTERNATIONAL UNIT, QW
     Route: 065
     Dates: start: 20220307
  2. IDELVION [Suspect]
     Active Substance: COAGULATION FACTOR IX RECOMBINANT HUMAN
     Dosage: 35 INTERNATIONAL UNIT, QW
     Route: 065
     Dates: start: 20220307
  3. IDELVION [Suspect]
     Active Substance: COAGULATION FACTOR IX RECOMBINANT HUMAN
     Dosage: 35 INTERNATIONAL UNIT, TOT
     Route: 065
     Dates: start: 202203
  4. IDELVION [Suspect]
     Active Substance: COAGULATION FACTOR IX RECOMBINANT HUMAN
     Dosage: 35 INTERNATIONAL UNIT, TOT
     Route: 065
     Dates: start: 202203
  5. IDELVION [Suspect]
     Active Substance: COAGULATION FACTOR IX RECOMBINANT HUMAN
     Dosage: 1000 INTERNATIONAL UNIT, TOT
     Route: 065
     Dates: start: 20220321, end: 20220321
  6. IDELVION [Suspect]
     Active Substance: COAGULATION FACTOR IX RECOMBINANT HUMAN
     Dosage: 1000 INTERNATIONAL UNIT, TOT
     Route: 065
     Dates: start: 20220321, end: 20220321

REACTIONS (2)
  - Myocardial infarction [Unknown]
  - Overdose [Unknown]

NARRATIVE: CASE EVENT DATE: 20220321
